FAERS Safety Report 8621940-3 (Version None)
Quarter: 2012Q3

REPORT INFORMATION
  Report Type: 
  Country: None (occurrence: None)
  Receive Date: 20120822
  Receipt Date: 20120822
  Transmission Date: 20120928
  Serious: Yes (Hospitalization)
  Sender: FDA-Public Use
  Company Number: None

PATIENT
  Age: 61 Year
  Sex: Female
  Weight: 86.1834 kg

DRUGS (2)
  1. FUNGI NAIL PEN [Suspect]
     Indication: ANTIFUNGAL TREATMENT
     Dosage: TOPICAL APPLICATION X 1
     Dates: start: 20120626, end: 20120628
  2. METHYLPREDNISOLONE ACETATE [Concomitant]

REACTIONS (4)
  - SKIN DISCOLOURATION [None]
  - OEDEMA PERIPHERAL [None]
  - BURNING SENSATION [None]
  - BURNS THIRD DEGREE [None]
